FAERS Safety Report 23198507 (Version 1)
Quarter: 2023Q4

REPORT INFORMATION
  Report Type: Spontaneous
  Country: CA (occurrence: CA)
  Receive Date: 20231117
  Receipt Date: 20231117
  Transmission Date: 20240110
  Serious: Yes (Hospitalization, Other)
  Sender: FDA-Public Use
  Company Number: CA-ELI_LILLY_AND_COMPANY-CA202311004128

PATIENT
  Age: 10 Month
  Sex: Male

DRUGS (2)
  1. SOMATROPIN [Suspect]
     Active Substance: SOMATROPIN
     Indication: Prader-Willi syndrome
     Dosage: 400 UG, UNKNOWN
     Route: 058
  2. SOMATROPIN [Suspect]
     Active Substance: SOMATROPIN
     Dosage: 200 UG, UNKNOWN
     Route: 058

REACTIONS (3)
  - Obstructive sleep apnoea syndrome [Recovered/Resolved]
  - Respiratory tract infection [Recovered/Resolved]
  - Off label use [Recovered/Resolved]
